FAERS Safety Report 21124914 (Version 1)
Quarter: 2022Q3

REPORT INFORMATION
  Report Type: Spontaneous
  Country: US (occurrence: US)
  Receive Date: 20220725
  Receipt Date: 20220725
  Transmission Date: 20221026
  Serious: No
  Sender: FDA-Public Use
  Company Number: US-BAYER-2022A098898

PATIENT
  Age: 80 Year
  Sex: Female

DRUGS (8)
  1. ALEVE [Suspect]
     Active Substance: NAPROXEN SODIUM
     Indication: Arthritis
     Dosage: 2 DF
     Route: 048
     Dates: start: 20220715, end: 20220715
  2. LOSARTAN [Concomitant]
     Active Substance: LOSARTAN
  3. TERAZOSIN [Concomitant]
     Active Substance: TERAZOSIN HYDROCHLORIDE
  4. THYROID [Concomitant]
     Active Substance: LEVOTHYROXINE\LIOTHYRONINE
  5. DIGOXIN [Concomitant]
     Active Substance: DIGOXIN
  6. DILTIAZEM [Concomitant]
     Active Substance: DILTIAZEM
  7. ESTROGENS [Concomitant]
     Active Substance: ESTROGENS
  8. VITAMINS NOS [Concomitant]
     Active Substance: VITAMINS

REACTIONS (1)
  - Diarrhoea [Recovered/Resolved]

NARRATIVE: CASE EVENT DATE: 20220715
